FAERS Safety Report 7645954-5 (Version None)
Quarter: 2011Q3

REPORT INFORMATION
  Report Type: 
  Country: None (occurrence: None)
  Receive Date: 20110729
  Receipt Date: 20110723
  Transmission Date: 20111222
  Serious: Yes (Other)
  Sender: FDA-Public Use
  Company Number: US-RB-029432-11

PATIENT
  Sex: Male

DRUGS (1)
  1. SUBOXONE [Suspect]
     Indication: SUBSTANCE USE
     Dosage: DOSING DETAILS UNKNOWN
     Route: 065
     Dates: start: 20110101

REACTIONS (1)
  - THERAPY NAIVE [None]
